FAERS Safety Report 4635274-5 (Version None)
Quarter: 2005Q2

REPORT INFORMATION
  Report Type: 
  Country: None (occurrence: None)
  Receive Date: 20050414
  Receipt Date: 20050404
  Transmission Date: 20051028
  Serious: Yes (Other)
  Sender: FDA-Public Use
  Company Number: PHBS2005BR04891

PATIENT
  Age: 52 Year
  Sex: Female

DRUGS (1)
  1. FEMARA [Suspect]
     Indication: BREAST CANCER STAGE IV
     Route: 065

REACTIONS (6)
  - AGITATION [None]
  - BLOOD THYROID STIMULATING HORMONE INCREASED [None]
  - COUGH [None]
  - HEART RATE INCREASED [None]
  - INSOMNIA [None]
  - MALIGNANT NEOPLASM PROGRESSION [None]
